FAERS Safety Report 8215866-7 (Version None)
Quarter: 2012Q1

REPORT INFORMATION
  Report Type: 
  Country: None (occurrence: None)
  Receive Date: 20120316
  Receipt Date: 20120308
  Transmission Date: 20120608
  Serious: Yes (Hospitalization, Disabling, Other)
  Sender: FDA-Public Use
  Company Number: US-MERCK-1106USA01821

PATIENT
  Age: 50 Year
  Sex: Female
  Weight: 57 kg

DRUGS (8)
  1. FOSAMAX [Suspect]
     Indication: OSTEOPENIA
     Route: 048
     Dates: start: 20011001, end: 20080401
  2. CALCIUM CITRATE [Concomitant]
     Route: 065
     Dates: start: 19990101
  3. OXYCODONE [Concomitant]
     Route: 065
  4. FOSAMAX [Suspect]
     Indication: OSTEOPOROSIS
     Route: 048
     Dates: start: 20011001, end: 20080401
  5. ASPIRIN [Concomitant]
     Route: 065
  6. VITAMIN D (UNSPECIFIED) [Concomitant]
     Route: 065
     Dates: start: 19990101
  7. VITAMINS (UNSPECIFIED) [Concomitant]
     Route: 065
     Dates: start: 19990101
  8. OMEGA-3 MARINE TRIGLYCERIDES [Concomitant]
     Route: 065
     Dates: start: 19990101

REACTIONS (23)
  - ACROCHORDON [None]
  - FIBROCYSTIC BREAST DISEASE [None]
  - MENOPAUSE [None]
  - OSTEOPETROSIS [None]
  - TONSILLAR HYPERTROPHY [None]
  - GLUCOSE TOLERANCE IMPAIRED [None]
  - FEMUR FRACTURE [None]
  - TAENIASIS [None]
  - MUSCULOSKELETAL PAIN [None]
  - ANXIETY [None]
  - OSTEOARTHRITIS [None]
  - HYPERLIPIDAEMIA [None]
  - DRUG INEFFECTIVE [None]
  - RHINITIS ALLERGIC [None]
  - ONYCHOMYCOSIS [None]
  - CONSTIPATION [None]
  - UPPER RESPIRATORY TRACT INFECTION [None]
  - RENAL CYST [None]
  - RASH [None]
  - DERMATITIS [None]
  - SWELLING [None]
  - SINUSITIS [None]
  - ELBOW DEFORMITY [None]
